FAERS Safety Report 20245623 (Version 3)
Quarter: 2022Q1

REPORT INFORMATION
  Report Type: Spontaneous
  Country: US (occurrence: US)
  Receive Date: 20211229
  Receipt Date: 20220210
  Transmission Date: 20220424
  Serious: No
  Sender: FDA-Public Use
  Company Number: US-PFIZER INC-202101689698

PATIENT
  Age: 12 Year
  Sex: Male
  Weight: 41.73 kg

DRUGS (1)
  1. GENOTROPIN [Suspect]
     Active Substance: SOMATROPIN
     Indication: Growth disorder
     Dosage: 1.6 MG

REACTIONS (3)
  - Poor quality product administered [Unknown]
  - Drug dose omission by device [Unknown]
  - Device physical property issue [Unknown]
